FAERS Safety Report 14514358 (Version 1)
Quarter: 2018Q1

REPORT INFORMATION
  Report Type: Other
  Country: NO (occurrence: NO)
  Receive Date: 20180209
  Receipt Date: 20180209
  Transmission Date: 20180509
  Serious: Yes (Hospitalization)
  Sender: FDA-Public Use
  Company Number: NO-GE HEALTHCARE LIFE SCIENCES-2018CSU000606

PATIENT

DRUGS (1)
  1. OMNIPAQUE [Suspect]
     Active Substance: IOHEXOL
     Indication: PRODUCT USED FOR UNKNOWN INDICATION
     Dosage: 180 ML, SINGLE
     Route: 042
     Dates: start: 20170527, end: 20170527

REACTIONS (6)
  - Pruritus [Recovered/Resolved]
  - Vomiting [Recovered/Resolved]
  - Dermatitis exfoliative generalised [Recovered/Resolved]
  - Cutaneous vasculitis [Recovered/Resolved]
  - Rash [Recovered/Resolved]
  - Pyrexia [Recovered/Resolved]

NARRATIVE: CASE EVENT DATE: 20170531
